FAERS Safety Report 9333181 (Version 1)
Quarter: 2013Q2

REPORT INFORMATION
  Report Type: Report from Study
  Country: CA (occurrence: CA)
  Receive Date: 20130606
  Receipt Date: 20130606
  Transmission Date: 20140414
  Serious: Yes (Other)
  Sender: FDA-Public Use
  Company Number: CA-JNJFOC-20130523040

PATIENT
  Age: 67 Year
  Sex: Female
  Weight: 93 kg

DRUGS (15)
  1. REMICADE [Suspect]
     Indication: CROHN^S DISEASE
     Route: 042
     Dates: start: 20081211
  2. DILTIAZEM ER [Concomitant]
     Route: 065
  3. PRADAXA [Concomitant]
     Route: 065
  4. AZATHIOPRINE [Concomitant]
     Route: 065
  5. OXYBUTYNIN [Concomitant]
     Dosage: PRN
     Route: 065
  6. METFORMIN [Concomitant]
     Route: 065
  7. RABEPRAZOLE [Concomitant]
     Route: 065
  8. CELEBREX [Concomitant]
     Route: 065
  9. CIPLOX [Concomitant]
     Route: 065
  10. ATORVASTATIN [Concomitant]
     Route: 065
  11. OLMETEC [Concomitant]
     Route: 065
  12. BUSCOPAN [Concomitant]
     Dosage: PRN
     Route: 065
  13. VENTOLIN [Concomitant]
     Route: 065
  14. SPIRIVA [Concomitant]
     Route: 065
  15. ADVAIR [Concomitant]
     Route: 065

REACTIONS (1)
  - Atrial fibrillation [Recovered/Resolved]
